FAERS Safety Report 15390905 (Version 2)
Quarter: 2018Q4

REPORT INFORMATION
  Report Type: Spontaneous
  Country: US (occurrence: US)
  Receive Date: 20180917
  Receipt Date: 20181127
  Transmission Date: 20190204
  Serious: No
  Sender: FDA-Public Use
  Company Number: US-SA-2018SA258108

PATIENT
  Age: 3 Year
  Sex: Female

DRUGS (1)
  1. DUPIXENT [Suspect]
     Active Substance: DUPILUMAB
     Dosage: 300 MG
     Route: 058
     Dates: start: 201808

REACTIONS (4)
  - Product use issue [Unknown]
  - Rash erythematous [Unknown]
  - Dry skin [Unknown]
  - Eczema [Unknown]

NARRATIVE: CASE EVENT DATE: 2018
